FAERS Safety Report 8089242-4 (Version None)
Quarter: 2012Q1

REPORT INFORMATION
  Report Type: 
  Country: None (occurrence: None)
  Receive Date: 20120128
  Receipt Date: 20110707
  Transmission Date: 20120608
  Serious: No
  Sender: FDA-Public Use
  Company Number: US-ABBOTT-11P-163-0837696-00

PATIENT
  Sex: Female
  Weight: 77.18 kg

DRUGS (3)
  1. AMBIEN [Concomitant]
     Indication: PRODUCT USED FOR UNKNOWN INDICATION
  2. HUMIRA [Suspect]
     Dosage: THE PATIENT IS DUE FOR NEXT DOSE ON 14 JUL 2011
     Route: 058
     Dates: start: 20110629, end: 20110629
  3. HUMIRA [Suspect]
     Indication: CROHN'S DISEASE
     Route: 058
     Dates: start: 20110628, end: 20110628

REACTIONS (4)
  - VOMITING [None]
  - PARAESTHESIA [None]
  - HYPOAESTHESIA [None]
  - NAUSEA [None]
